FAERS Safety Report 11029714 (Version 1)
Quarter: 2015Q2

REPORT INFORMATION
  Report Type: Spontaneous
  Country: US (occurrence: None)
  Receive Date: 20150413
  Receipt Date: 20150413
  Transmission Date: 20150821
  Serious: Yes (Hospitalization)
  Sender: FDA-Public Use
  Company Number: HA15-100-AE

PATIENT
  Age: 21 Year
  Sex: Female
  Weight: 63.5 kg

DRUGS (2)
  1. SMZ/TMP TABLETS, USP 800MG/160MG (AMNEAL) [Suspect]
     Active Substance: SULFAMETHOXAZOLE\TRIMETHOPRIM
     Indication: INFECTION
     Route: 048
     Dates: start: 20150308, end: 20150310
  2. BIRTH CONTROL PILLS [Concomitant]
     Active Substance: UNSPECIFIED INGREDIENT

REACTIONS (7)
  - Pyrexia [None]
  - Arthralgia [None]
  - Rash generalised [None]
  - Headache [None]
  - Abasia [None]
  - Pain [None]
  - Nausea [None]

NARRATIVE: CASE EVENT DATE: 20150308
